FAERS Safety Report 14593070 (Version 1)
Quarter: 2018Q1

REPORT INFORMATION
  Report Type: Spontaneous
  Country: US (occurrence: US)
  Receive Date: 20180302
  Receipt Date: 20180302
  Transmission Date: 20180509
  Serious: Yes (Life-Threatening, Hospitalization)
  Sender: FDA-Public Use
  Company Number: None

PATIENT
  Age: 71 Year
  Sex: Female
  Weight: 64.86 kg

DRUGS (10)
  1. GLUCOSAMINE [Concomitant]
     Active Substance: GLUCOSAMINE
  2. METOPROLOL 50MG [Suspect]
     Active Substance: METOPROLOL
     Indication: HYPERTENSION
     Route: 048
     Dates: start: 20080310, end: 20171110
  3. POTASSIUM [Concomitant]
     Active Substance: POTASSIUM
  4. VITAMIN D3 [Concomitant]
     Active Substance: CHOLECALCIFEROL
  5. LORAZEPAM. [Concomitant]
     Active Substance: LORAZEPAM
  6. AMLODIPINE [Concomitant]
     Active Substance: AMLODIPINE BESYLATE
  7. LOSARTAN. [Concomitant]
     Active Substance: LOSARTAN
  8. MELATONIN [Concomitant]
     Active Substance: MELATONIN
  9. ALENDRONATE SODIUM. [Concomitant]
     Active Substance: ALENDRONATE SODIUM
  10. HYDROCHLOROTHIAZIDE. [Concomitant]
     Active Substance: HYDROCHLOROTHIAZIDE

REACTIONS (12)
  - Tremor [None]
  - Suicidal ideation [None]
  - Intentional overdose [None]
  - Cerebrovascular accident [None]
  - Crying [None]
  - Road traffic accident [None]
  - Loss of personal independence in daily activities [None]
  - Memory impairment [None]
  - Screaming [None]
  - Depression [None]
  - Weight decreased [None]
  - Toxicity to various agents [None]

NARRATIVE: CASE EVENT DATE: 20161110
